FAERS Safety Report 4923700-3 (Version None)
Quarter: 2006Q1

REPORT INFORMATION
  Report Type: 
  Country: None (occurrence: None)
  Receive Date: 20060227
  Receipt Date: 20050414
  Transmission Date: 20060701
  Serious: Yes (Disabling)
  Sender: FDA-Public Use
  Company Number: US-MERCK-0504USA02967

PATIENT
  Age: 50 Year
  Sex: Male
  Weight: 155 kg

DRUGS (2)
  1. VIOXX [Suspect]
     Indication: MONARTHRITIS
     Route: 048
     Dates: start: 20031101, end: 20040901
  2. [THERAPY UNSPECIFIED] [Concomitant]
     Route: 065

REACTIONS (6)
  - CEREBROVASCULAR ACCIDENT [None]
  - JOINT SWELLING [None]
  - OEDEMA PERIPHERAL [None]
  - OVERDOSE [None]
  - SKIN CANCER [None]
  - THROMBOSIS [None]
